FAERS Safety Report 24592939 (Version 3)
Quarter: 2025Q3

REPORT INFORMATION
  Report Type: Report from Study
  Country: US (occurrence: US)
  Receive Date: 20241108
  Receipt Date: 20250803
  Transmission Date: 20251020
  Serious: Yes (Other)
  Sender: ALEXION PHARMACEUTICALS
  Company Number: US-AstraZeneca-CH-00740793A

PATIENT
  Sex: Male

DRUGS (2)
  1. OLAPARIB [Suspect]
     Active Substance: OLAPARIB
     Route: 065
  2. ORGOVYX [Concomitant]
     Active Substance: RELUGOLIX

REACTIONS (4)
  - Rib fracture [Unknown]
  - Coeliac disease [Unknown]
  - Fatigue [Unknown]
  - Decreased activity [Unknown]
